FAERS Safety Report 9358154 (Version 3)
Quarter: 2013Q4

REPORT INFORMATION
  Report Type: Spontaneous
  Country: FR (occurrence: FR)
  Receive Date: 20130620
  Receipt Date: 20131128
  Transmission Date: 20140711
  Serious: Yes (Other)
  Sender: FDA-Public Use
  Company Number: FR-JNJFOC-20130610452

PATIENT
  Sex: Male

DRUGS (3)
  1. SIMPONI [Suspect]
     Indication: ANKYLOSING SPONDYLITIS
     Dosage: CONFLICTINGLY ALSO REPORTED AS : INITIATED IN DEC-2012
     Route: 058
     Dates: start: 201209
  2. TRIATEC [Concomitant]
     Route: 065
  3. NEBIVOLOL [Concomitant]
     Route: 065

REACTIONS (1)
  - Sarcoidosis [Unknown]
